FAERS Safety Report 5420450-4 (Version None)
Quarter: 2007Q3

REPORT INFORMATION
  Report Type: 
  Country: None (occurrence: None)
  Receive Date: 20070817
  Receipt Date: 20070817
  Transmission Date: 20080115
  Serious: No
  Sender: FDA-Public Use
  Company Number: None

PATIENT
  Sex: Female
  Weight: 7.4 kg

DRUGS (3)
  1. CLINDAMYCIN HCL [Suspect]
     Indication: CELLULITIS
     Dates: start: 20070717, end: 20070722
  2. VANCOMYCIN VANCO 75MG Q6 [Suspect]
     Indication: CELLULITIS
     Dates: start: 20070718, end: 20070723
  3. GENTAMYCIN 8.9 MG Q8 [Suspect]
     Dates: start: 20070719, end: 20070722

REACTIONS (1)
  - RASH GENERALISED [None]
